FAERS Safety Report 5281765-6 (Version None)
Quarter: 2007Q1

REPORT INFORMATION
  Report Type: 
  Country: None (occurrence: None)
  Receive Date: 20070330
  Receipt Date: 20070327
  Transmission Date: 20070707
  Serious: Yes (Other)
  Sender: FDA-Public Use
  Company Number: JP-GLAXOSMITHKLINE-B0463641A

PATIENT
  Age: 8 Year
  Sex: Female

DRUGS (6)
  1. RELENZA [Suspect]
     Indication: INFLUENZA
     Dosage: 10MG TWICE PER DAY
     Route: 055
     Dates: start: 20070316, end: 20070316
  2. MEDICON [Concomitant]
     Route: 048
  3. BISOLVON [Concomitant]
     Route: 048
  4. MEPTIN [Concomitant]
     Route: 048
  5. POLARAMINE [Concomitant]
     Route: 048
  6. CALONAL [Concomitant]
     Route: 048

REACTIONS (1)
  - DELIRIUM [None]
